FAERS Safety Report 12823088 (Version 31)
Quarter: 2021Q3

REPORT INFORMATION
  Report Type: Report from Study
  Country: CA (occurrence: CA)
  Receive Date: 20161007
  Receipt Date: 20210823
  Transmission Date: 20211014
  Serious: Yes (Death, Other)
  Sender: FDA-Public Use
  Company Number: PHHY2011CA37575

PATIENT
  Age: 74 Year
  Sex: Female

DRUGS (10)
  1. METOPROLOL. [Suspect]
     Active Substance: METOPROLOL
     Indication: PRODUCT USED FOR UNKNOWN INDICATION
     Dosage: UNK
     Route: 065
  2. SANDOSTATIN LAR DEPOT [Suspect]
     Active Substance: OCTREOTIDE ACETATE
     Indication: GASTRINOMA
     Dosage: 20 MG, Q4W (EVERY 4 WEEKS)
     Route: 030
     Dates: start: 20091229
  3. SANDOSTATIN LAR DEPOT [Suspect]
     Active Substance: OCTREOTIDE ACETATE
     Dosage: 20 MG, Q4W (EVERY 4 WEEKS)
     Route: 030
     Dates: start: 20150702
  4. COVERSYL [Concomitant]
     Active Substance: PERINDOPRIL
     Indication: PRODUCT USED FOR UNKNOWN INDICATION
     Dosage: UNK
     Route: 065
  5. NOVO?METOPROL [Concomitant]
     Active Substance: METOPROLOL TARTRATE
     Indication: PRODUCT USED FOR UNKNOWN INDICATION
     Dosage: UNK
     Route: 065
  6. DIAMICRON MR [Concomitant]
     Active Substance: GLICLAZIDE
     Indication: DIABETES MELLITUS
     Dosage: 60 MG (DIE AT SUPPER)
     Route: 048
     Dates: start: 2016
  7. SANDOSTATIN LAR DEPOT [Suspect]
     Active Substance: OCTREOTIDE ACETATE
     Dosage: 20 MG, QMO (ONCE A MONTH)
     Route: 030
     Dates: start: 20100721
  8. SANDOSTATIN LAR DEPOT [Suspect]
     Active Substance: OCTREOTIDE ACETATE
     Dosage: 10 MG, QMO (ONCE A MONTH)
     Route: 030
     Dates: start: 20100610
  9. SANDOSTATIN LAR DEPOT [Suspect]
     Active Substance: OCTREOTIDE ACETATE
     Dosage: 20 MG, Q4W (EVERY 4 WEEKS)
     Route: 030
  10. FORXIGA [Concomitant]
     Active Substance: DAPAGLIFLOZIN
     Indication: DIABETES MELLITUS
     Dosage: 5 MG (DIE IN THE MORNING)
     Route: 048
     Dates: start: 2016

REACTIONS (39)
  - Malignant polyp [Unknown]
  - Blood pressure decreased [Unknown]
  - Faeces discoloured [Unknown]
  - Abdominal pain [Unknown]
  - Second primary malignancy [Unknown]
  - Renal pain [Unknown]
  - Decreased appetite [Unknown]
  - Discomfort [Unknown]
  - Respiratory tract infection [Unknown]
  - Cough [Unknown]
  - Fatigue [Unknown]
  - Blood glucose increased [Unknown]
  - Hepatic cancer [Unknown]
  - Peripheral coldness [Unknown]
  - Dizziness [Unknown]
  - Nausea [Unknown]
  - Haematochezia [Unknown]
  - Terminal state [Unknown]
  - Foreign body in gastrointestinal tract [Unknown]
  - Blood pressure systolic increased [Unknown]
  - Hypotension [Unknown]
  - Hepatomegaly [Unknown]
  - Blood pressure increased [Unknown]
  - Basal cell carcinoma [Unknown]
  - Lung neoplasm malignant [Unknown]
  - Gastrooesophageal reflux disease [Unknown]
  - Death [Fatal]
  - Melaena [Unknown]
  - Anaemia [Unknown]
  - Hypertension [Unknown]
  - Needle issue [Unknown]
  - Hypoglycaemia [Recovered/Resolved]
  - Sputum discoloured [Unknown]
  - Gallbladder cancer [Unknown]
  - Body temperature decreased [Unknown]
  - Musculoskeletal pain [Unknown]
  - Pulmonary mass [Unknown]
  - Abdominal distension [Unknown]
  - Constipation [Unknown]

NARRATIVE: CASE EVENT DATE: 20150127
